FAERS Safety Report 21670594 (Version 2)
Quarter: 2022Q4

REPORT INFORMATION
  Report Type: Report from Study
  Country: US (occurrence: US)
  Receive Date: 20221201
  Receipt Date: 20221202
  Transmission Date: 20230113
  Serious: No
  Sender: FDA-Public Use
  Company Number: US-ABBVIE-4216553

PATIENT
  Sex: Male

DRUGS (1)
  1. VENETOCLAX [Suspect]
     Active Substance: VENETOCLAX
     Indication: Acute myeloid leukaemia
     Dosage: FORM STRENGTH: 100 MG?TAKE 2 TABLETS BY MOUTH ONCE 1 THROUGH DAILY ON DAYS ROUGH 10 OF CHEMOTHERA...
     Route: 048

REACTIONS (1)
  - Off label use [Unknown]
